FAERS Safety Report 5918683-3 (Version None)
Quarter: 2008Q4

REPORT INFORMATION
  Report Type: 
  Country: None (occurrence: None)
  Receive Date: 20081015
  Receipt Date: 20080603
  Transmission Date: 20090506
  Serious: No
  Sender: FDA-Public Use
  Company Number: US-ASTRAZENECA-2008UW11150

PATIENT
  Age: 80 Year
  Sex: Female
  Weight: 74.8 kg

DRUGS (8)
  1. SYMBICORT [Suspect]
     Indication: ASTHMA
     Dosage: 160 / 4.5 UG 2 PUFFS BID
     Route: 055
  2. SYMBICORT [Suspect]
     Indication: CHRONIC OBSTRUCTIVE PULMONARY DISEASE
     Dosage: 160 / 4.5 UG 2 PUFFS BID
     Route: 055
  3. SYMBICORT [Suspect]
     Indication: EMPHYSEMA
     Dosage: 160 / 4.5 UG 2 PUFFS BID
     Route: 055
  4. SINGULAIR [Concomitant]
  5. EVISTA [Concomitant]
  6. PREVACID [Concomitant]
  7. ALBUTEROL [Concomitant]
  8. ADVAIR DISKUS 100/50 [Concomitant]

REACTIONS (1)
  - INSOMNIA [None]
